FAERS Safety Report 12815904 (Version 3)
Quarter: 2019Q3

REPORT INFORMATION
  Report Type: Spontaneous
  Country: FR (occurrence: FR)
  Receive Date: 20161005
  Receipt Date: 20190904
  Transmission Date: 20191004
  Serious: Yes (Other)
  Sender: FDA-Public Use
  Company Number: FR-ALLERGAN-1670810US

PATIENT
  Sex: Male
  Weight: 42 kg

DRUGS (6)
  1. UROREC [Suspect]
     Active Substance: SILODOSIN
     Indication: NEUROGENIC BLADDER
     Dosage: 4 MG, QD
     Route: 048
     Dates: start: 20160712, end: 20160712
  2. VESICARE [Suspect]
     Active Substance: SOLIFENACIN SUCCINATE
     Indication: EXTRAPYRAMIDAL DISORDER
     Dosage: 5 MG, QD
     Route: 048
     Dates: start: 20160712
  3. BENSERAZIDE [Concomitant]
     Active Substance: BENSERAZIDE
     Indication: PRODUCT USED FOR UNKNOWN INDICATION
     Dosage: UNK
  4. LEVODOPA [Concomitant]
     Active Substance: LEVODOPA
     Indication: PRODUCT USED FOR UNKNOWN INDICATION
     Dosage: UNK
  5. BACLOFEN. [Concomitant]
     Active Substance: BACLOFEN
     Indication: PRODUCT USED FOR UNKNOWN INDICATION
     Dosage: UNK
  6. UROREC [Suspect]
     Active Substance: SILODOSIN
     Indication: EXTRAPYRAMIDAL DISORDER

REACTIONS (3)
  - Off label use [Unknown]
  - Loss of consciousness [Recovered/Resolved]
  - Hypotension [Recovered/Resolved]

NARRATIVE: CASE EVENT DATE: 20160712
